FAERS Safety Report 24967288 (Version 2)
Quarter: 2025Q1

REPORT INFORMATION
  Report Type: Spontaneous
  Country: BE (occurrence: BE)
  Receive Date: 20250213
  Receipt Date: 20250221
  Transmission Date: 20250409
  Serious: Yes (Disabling)
  Sender: ORGANON
  Company Number: None

PATIENT
  Age: 37 Year
  Sex: Female
  Weight: 94 kg

DRUGS (3)
  1. NUVARING [Suspect]
     Active Substance: ETHINYL ESTRADIOL\ETONOGESTREL
     Indication: Contraception
     Dosage: 3 DAYS IN FIRST MONTHS OF 2024 IN THE YEARS 2006-2021 THERE WERE NO PROBLEMS WHEN I ONLY TOOK LAMICT
     Route: 067
  2. LAMICTAL [Suspect]
     Active Substance: LAMOTRIGINE
  3. FYCOMPA [Concomitant]
     Active Substance: PERAMPANEL

REACTIONS (2)
  - Partial seizures [Recovered/Resolved]
  - Malaise [Recovered/Resolved]
